FAERS Safety Report 17646540 (Version 2)
Quarter: 2020Q2

REPORT INFORMATION
  Report Type: Spontaneous
  Country: US (occurrence: US)
  Receive Date: 20200408
  Receipt Date: 20200525
  Transmission Date: 20200713
  Serious: No
  Sender: FDA-Public Use
  Company Number: US-BIOGEN-2008BI022660

PATIENT
  Age: 36 Year
  Sex: Female

DRUGS (3)
  1. TYSABRI [Suspect]
     Active Substance: NATALIZUMAB
     Indication: MULTIPLE SCLEROSIS
     Route: 042
     Dates: start: 20080624, end: 201311
  2. TYSABRI [Suspect]
     Active Substance: NATALIZUMAB
     Route: 042
     Dates: start: 20160322
  3. TYSABRI [Suspect]
     Active Substance: NATALIZUMAB
     Route: 042
     Dates: start: 2007, end: 2012

REACTIONS (12)
  - Cognitive disorder [Unknown]
  - Hypoaesthesia [Unknown]
  - Infusion site pain [Not Recovered/Not Resolved]
  - Influenza [Not Recovered/Not Resolved]
  - Infusion site rash [Recovered/Resolved]
  - Infusion site discolouration [Not Recovered/Not Resolved]
  - Contusion [Unknown]
  - Somnolence [Recovered/Resolved]
  - Urticaria [Recovered/Resolved]
  - Injury [Not Recovered/Not Resolved]
  - Immunosuppression [Unknown]
  - Pain in extremity [Unknown]

NARRATIVE: CASE EVENT DATE: 200802
